FAERS Safety Report 7651097-7 (Version None)
Quarter: 2011Q3

REPORT INFORMATION
  Report Type: 
  Country: None (occurrence: None)
  Receive Date: 20110802
  Receipt Date: 20110613
  Transmission Date: 20111222
  Serious: Yes (Hospitalization)
  Sender: FDA-Public Use
  Company Number: PHHY2011BR52794

PATIENT
  Sex: Male

DRUGS (1)
  1. CLOZAPINE [Suspect]
     Dosage: 4 DF, QD (4 TABLETS A DAY)

REACTIONS (2)
  - AGGRESSION [None]
  - GENERAL PHYSICAL HEALTH DETERIORATION [None]
